FAERS Safety Report 14693035 (Version 2)
Quarter: 2018Q2

REPORT INFORMATION
  Report Type: Spontaneous
  Country: US (occurrence: US)
  Receive Date: 20180329
  Receipt Date: 20180406
  Transmission Date: 20180711
  Serious: Yes (Other)
  Sender: FDA-Public Use
  Company Number: PHEH2018US011218

PATIENT
  Sex: Female

DRUGS (2)
  1. LETROZOLE. [Suspect]
     Active Substance: LETROZOLE
     Indication: BREAST CANCER METASTATIC
     Dosage: 2.5 MG, QD
     Route: 065
     Dates: start: 2016
  2. IBRANCE [Suspect]
     Active Substance: PALBOCICLIB
     Indication: BREAST CANCER METASTATIC
     Dosage: 125 MG FOR 21 DAYS AND STOP FOR 7 DAYS
     Route: 065
     Dates: start: 2016

REACTIONS (5)
  - Clostridium difficile infection [Recovering/Resolving]
  - Volume blood decreased [Unknown]
  - Nasopharyngitis [Unknown]
  - Abdominal discomfort [Recovering/Resolving]
  - Malaise [Unknown]
